FAERS Safety Report 12155938 (Version 1)
Quarter: 2016Q1

REPORT INFORMATION
  Report Type: Other
  Country: FR (occurrence: FR)
  Receive Date: 20160307
  Receipt Date: 20160307
  Transmission Date: 20160526
  Serious: Yes (Hospitalization, Other)
  Sender: FDA-Public Use
  Company Number: FR-SYMPLMED PHARMACEUTICALS-2016SYMPLMED000160

PATIENT

DRUGS (5)
  1. SYMBICORT [Suspect]
     Active Substance: BUDESONIDE\FORMOTEROL FUMARATE DIHYDRATE
     Indication: COUGH
     Dosage: UNK
     Route: 048
     Dates: start: 20150805, end: 20150819
  2. PNEUMOREL [Suspect]
     Active Substance: FENSPIRIDE HYDROCHLORIDE
     Indication: COUGH
     Dosage: UNK
     Route: 048
     Dates: start: 20150805, end: 20150819
  3. LASILIX                            /00032601/ [Suspect]
     Active Substance: FUROSEMIDE
     Indication: CORONARY OSTIAL STENOSIS
     Dosage: 20 MG, QD
     Route: 048
     Dates: start: 20150626, end: 20150822
  4. COVERSYL [Suspect]
     Active Substance: PERINDOPRIL
     Indication: CORONARY OSTIAL STENOSIS
     Dosage: 2 MG, QD
     Route: 048
     Dates: start: 20150626, end: 20150819
  5. BISOPROLOL FUMARATE. [Concomitant]
     Active Substance: BISOPROLOL FUMARATE
     Indication: CORONARY OSTIAL STENOSIS
     Dosage: UNK
     Dates: start: 201506

REACTIONS (7)
  - Crystal arthropathy [Unknown]
  - Cough [Unknown]
  - Drug reaction with eosinophilia and systemic symptoms [Recovered/Resolved]
  - Mixed liver injury [Recovered/Resolved]
  - Jaundice [Recovered/Resolved]
  - Pyrexia [Recovered/Resolved]
  - Oedema [Unknown]

NARRATIVE: CASE EVENT DATE: 20150817
